FAERS Safety Report 19919170 (Version 2)
Quarter: 2021Q4

REPORT INFORMATION
  Report Type: Spontaneous
  Country: MX (occurrence: MX)
  Receive Date: 20211004
  Receipt Date: 20211008
  Transmission Date: 20220303
  Serious: Yes (Other)
  Sender: FDA-Public Use
  Company Number: MX-GILEAD-2021-0550895

PATIENT
  Age: 34 Year
  Sex: Male

DRUGS (1)
  1. BIKTARVY [Suspect]
     Active Substance: BICTEGRAVIR SODIUM\EMTRICITABINE\TENOFOVIR ALAFENAMIDE FUMARATE
     Indication: HIV infection
     Dosage: 1 DOSAGE FORM, QD
     Route: 048
     Dates: start: 201908

REACTIONS (2)
  - Renal injury [Not Recovered/Not Resolved]
  - Glycosuria [Not Recovered/Not Resolved]

NARRATIVE: CASE EVENT DATE: 20210801
